FAERS Safety Report 11619795 (Version 1)
Quarter: 2015Q4

REPORT INFORMATION
  Report Type: Spontaneous
  Country: FR (occurrence: FR)
  Receive Date: 20151012
  Receipt Date: 20151012
  Transmission Date: 20160304
  Serious: Yes (Hospitalization)
  Sender: FDA-Public Use
  Company Number: FR-PFIZER INC-2015333234

PATIENT
  Age: 73 Year
  Sex: Male
  Weight: 73 kg

DRUGS (6)
  1. FOSFOMYCIN [Concomitant]
     Active Substance: FOSFOMYCIN
     Indication: MENINGITIS
     Dosage: UNK
     Dates: start: 20150717, end: 20150720
  2. VFEND [Suspect]
     Active Substance: VORICONAZOLE
     Dosage: 200 MG, 2X/DAY
     Route: 048
     Dates: start: 20150723
  3. FLUCONAZOLE. [Concomitant]
     Active Substance: FLUCONAZOLE
     Indication: MENINGITIS
     Dosage: UNK
     Dates: start: 20150717, end: 20150720
  4. VFEND [Suspect]
     Active Substance: VORICONAZOLE
     Indication: FUNGAL INFECTION
     Dosage: 300 MG, 2X/DAY
     Route: 048
     Dates: start: 20150721, end: 20150722
  5. AMBISOME [Concomitant]
     Active Substance: AMPHOTERICIN B
     Indication: MENINGITIS
     Dosage: UNK
     Dates: start: 20150717, end: 20150720
  6. CEFOTAXIME [Concomitant]
     Active Substance: CEFOTAXIME SODIUM
     Indication: MENINGITIS
     Dosage: UNK
     Dates: start: 20150717, end: 20150720

REACTIONS (2)
  - Drug-induced liver injury [Recovered/Resolved]
  - Drug level increased [Recovered/Resolved]

NARRATIVE: CASE EVENT DATE: 20150727
